FAERS Safety Report 17386565 (Version 1)
Quarter: 2020Q1

REPORT INFORMATION
  Report Type: Spontaneous
  Country: US (occurrence: US)
  Receive Date: 20200206
  Receipt Date: 20200206
  Transmission Date: 20200409
  Serious: No
  Sender: FDA-Public Use
  Company Number: US-ASTRAZENECA-2020SE04395

PATIENT
  Sex: Male

DRUGS (1)
  1. LOKELMA [Suspect]
     Active Substance: SODIUM ZIRCONIUM CYCLOSILICATE
     Dosage: UNKNOWN DOSE, THREE TIMES A WEEK
     Route: 048

REACTIONS (2)
  - Dyspnoea [Unknown]
  - Urinary straining [Unknown]
